FAERS Safety Report 12207952 (Version 1)
Quarter: 2016Q1

REPORT INFORMATION
  Report Type: Spontaneous
  Country: US (occurrence: US)
  Receive Date: 20160324
  Receipt Date: 20160324
  Transmission Date: 20160526
  Serious: No
  Sender: FDA-Public Use
  Company Number: US-BIOMARINAP-US-2016-109140

PATIENT
  Age: 10 Year
  Sex: Male
  Weight: 18 kg

DRUGS (1)
  1. VIMIZIM [Suspect]
     Active Substance: ELOSULFASE ALFA
     Indication: MUCOPOLYSACCHARIDOSIS IV
     Dosage: 36 MG, QW
     Route: 042
     Dates: start: 20160227

REACTIONS (2)
  - Rash [Unknown]
  - Viral infection [Unknown]

NARRATIVE: CASE EVENT DATE: 20160303
